FAERS Safety Report 8579525-3 (Version None)
Quarter: 2012Q3

REPORT INFORMATION
  Report Type: 
  Country: None (occurrence: None)
  Receive Date: 20120808
  Receipt Date: 20120731
  Transmission Date: 20120928
  Serious: Yes (Hospitalization)
  Sender: FDA-Public Use
  Company Number: DE-JNJFOC-20120801147

PATIENT
  Age: 62 Year
  Sex: Female

DRUGS (7)
  1. SIMPONI [Suspect]
     Indication: RHEUMATOID ARTHRITIS
     Route: 058
     Dates: start: 20101101, end: 20110201
  2. PREDNISONE [Concomitant]
     Dates: start: 20020301
  3. METFORMIN HYDROCHLORIDE [Concomitant]
  4. OMEPRAZOLE [Concomitant]
     Dates: start: 20101101
  5. LEVOTHYROXINE SODIUM [Concomitant]
  6. CERTOLIZUMAB [Suspect]
     Indication: RHEUMATOID ARTHRITIS
     Dates: start: 20120101, end: 20120516
  7. ARCOXIA [Concomitant]
     Dates: start: 20110201

REACTIONS (1)
  - THYROID CANCER RECURRENT [None]
